FAERS Safety Report 15260219 (Version 2)
Quarter: 2018Q3

REPORT INFORMATION
  Report Type: Other
  Country: JP (occurrence: JP)
  Receive Date: 20180809
  Receipt Date: 20180831
  Transmission Date: 20181010
  Serious: Yes (Hospitalization, Other)
  Sender: FDA-Public Use
  Company Number: JP-ACTELION-A-CH2018-177047

PATIENT
  Age: 75 Year
  Sex: Female

DRUGS (2)
  1. RIOCIGUAT. [Concomitant]
     Active Substance: RIOCIGUAT
  2. BOSENTAN. [Suspect]
     Active Substance: BOSENTAN
     Indication: PULMONARY ARTERIAL HYPERTENSION
     Route: 048

REACTIONS (4)
  - Pneumonia [Unknown]
  - Condition aggravated [Unknown]
  - Blood pressure decreased [Unknown]
  - Renal impairment [Unknown]
